FAERS Safety Report 5367328-2 (Version None)
Quarter: 2007Q2

REPORT INFORMATION
  Report Type: 
  Country: None (occurrence: None)
  Receive Date: 20070622
  Receipt Date: 20060511
  Transmission Date: 20071010
  Serious: No
  Sender: FDA-Public Use
  Company Number: US-ASTRAZENECA-2006UW09402

PATIENT
  Age: 71 Year
  Sex: Female
  Weight: 59 kg

DRUGS (8)
  1. PULMICORT RESPULES [Suspect]
     Indication: ASTHMA
     Dosage: .025/2ML
     Route: 055
     Dates: start: 20060425
  2. PULMICORT RESPULES [Suspect]
     Indication: CHRONIC OBSTRUCTIVE PULMONARY DISEASE
     Dosage: .025/2ML
     Route: 055
     Dates: start: 20060425
  3. ADVAIR DISKUS 100/50 [Concomitant]
     Dates: end: 20060424
  4. DUONEB [Concomitant]
  5. ALBUTEROL [Concomitant]
  6. ALLEGRA [Concomitant]
  7. ZANTAC [Concomitant]
  8. OVER THE COUNTER VITAMINS [Concomitant]

REACTIONS (2)
  - CHEST DISCOMFORT [None]
  - WHEEZING [None]
